FAERS Safety Report 6341153-8 (Version None)
Quarter: 2009Q3

REPORT INFORMATION
  Report Type: 
  Country: None (occurrence: None)
  Receive Date: 20090904
  Receipt Date: 20090223
  Transmission Date: 20100115
  Serious: No
  Sender: FDA-Public Use
  Company Number: A0770017A

PATIENT
  Age: 70 Year
  Sex: Female

DRUGS (2)
  1. REQUIP [Suspect]
     Indication: PARKINSON'S DISEASE
     Dosage: 4MG THREE TIMES PER DAY
     Route: 048
     Dates: start: 20040101
  2. SINEMET [Concomitant]
     Dates: start: 20070101

REACTIONS (3)
  - CONTUSION [None]
  - OEDEMA PERIPHERAL [None]
  - RASH MACULAR [None]
